FAERS Safety Report 22175683 (Version 1)
Quarter: 2023Q2

REPORT INFORMATION
  Report Type: Spontaneous
  Country: US (occurrence: US)
  Receive Date: 20230405
  Receipt Date: 20230405
  Transmission Date: 20230721
  Serious: Yes (Hospitalization, Other)
  Sender: FDA-Public Use
  Company Number: US-GLAXOSMITHKLINE-US2023048499

PATIENT

DRUGS (1)
  1. TRELEGY ELLIPTA [Suspect]
     Active Substance: FLUTICASONE FUROATE\UMECLIDINIUM BROMIDE\VILANTEROL TRIFENATATE
     Indication: Chronic obstructive pulmonary disease
     Dosage: 1 PUFF(S), QD TRELEGY 100/62.5/25MCG INHALE ONCE DAILY
     Route: 055
     Dates: start: 2021

REACTIONS (5)
  - Pulmonary embolism [Unknown]
  - Dizziness [Unknown]
  - Hypertension [Unknown]
  - Anaemia [Unknown]
  - Lung opacity [Unknown]
